FAERS Safety Report 9888791 (Version 1)
Quarter: 2014Q1

REPORT INFORMATION
  Report Type: Spontaneous
  Country: US (occurrence: None)
  Receive Date: 20140210
  Receipt Date: 20140210
  Transmission Date: 20141002
  Serious: Yes (Hospitalization, Other)
  Sender: FDA-Public Use
  Company Number: None

PATIENT
  Sex: 0

DRUGS (1)
  1. HALDOL [Suspect]
     Indication: PAIN
     Route: 048
     Dates: start: 20141212, end: 20140120

REACTIONS (4)
  - Fatigue [None]
  - Restlessness [None]
  - Movement disorder [None]
  - Fall [None]
